FAERS Safety Report 4482290-2 (Version None)
Quarter: 2004Q4

REPORT INFORMATION
  Report Type: 
  Country: None (occurrence: None)
  Receive Date: 20041020
  Receipt Date: 20041006
  Transmission Date: 20050328
  Serious: Yes (Other)
  Sender: FDA-Public Use
  Company Number: USA041080347

PATIENT
  Age: 35 Year
  Sex: Male
  Weight: 90 kg

DRUGS (5)
  1. ZYPREXA [Suspect]
     Indication: SCHIZOPHRENIA
     Dosage: 20 MG/1 DAY
     Dates: start: 20010101, end: 20040101
  2. XANAX (ALPRAZOLAM DUM) [Concomitant]
  3. BUSPAR [Concomitant]
  4. PAXIL (APROXETINE HYDROCHLORIDE) [Concomitant]
  5. METHADONE HCL [Concomitant]

REACTIONS (7)
  - BACK PAIN [None]
  - CONVULSION [None]
  - DEPRESSION [None]
  - DRUG EFFECT DECREASED [None]
  - HUNGER [None]
  - ROAD TRAFFIC ACCIDENT [None]
  - WEIGHT INCREASED [None]
